FAERS Safety Report 26118899 (Version 1)
Quarter: 2025Q4

REPORT INFORMATION
  Report Type: Spontaneous
  Country: US (occurrence: None)
  Receive Date: 20251204
  Receipt Date: 20251204
  Transmission Date: 20260118
  Serious: No
  Sender: CHIESI
  Company Number: US-CHIESI-2025CHF06391

PATIENT

DRUGS (1)
  1. LAMZEDE [Suspect]
     Active Substance: VELMANASE ALFA-TYCV
     Indication: Product used for unknown indication
     Dosage: UNK
     Route: 065

REACTIONS (2)
  - Product complaint [Not Recovered/Not Resolved]
  - Product administration interrupted [Not Recovered/Not Resolved]
